FAERS Safety Report 9602823 (Version 1)
Quarter: 2013Q4

REPORT INFORMATION
  Report Type: Spontaneous
  Country: US (occurrence: US)
  Receive Date: 20131007
  Receipt Date: 20131007
  Transmission Date: 20140711
  Serious: Yes (Other)
  Sender: FDA-Public Use
  Company Number: CHPA2013US015069

PATIENT
  Age: 67 Year
  Sex: Male

DRUGS (4)
  1. EXCEDRIN EXTRA STRENGTH [Suspect]
     Indication: NASOPHARYNGITIS
     Dosage: 2 DF, UNK
     Route: 065
  2. EXCEDRIN EXTRA STRENGTH [Suspect]
     Indication: HEADACHE
  3. EXCEDRIN EXTRA STRENGTH [Suspect]
     Indication: LOWER LIMB FRACTURE
  4. EXCEDRIN EXTRA STRENGTH [Suspect]
     Indication: OFF LABEL USE

REACTIONS (2)
  - Lower limb fracture [Recovered/Resolved]
  - Headache [Unknown]
